FAERS Safety Report 23058312 (Version 1)
Quarter: 2023Q4

REPORT INFORMATION
  Report Type: Spontaneous
  Country: US (occurrence: None)
  Receive Date: 20231011
  Receipt Date: 20231011
  Transmission Date: 20240109
  Serious: Yes (Other)
  Sender: FDA-Public Use
  Company Number: None

PATIENT
  Age: 16 Year
  Sex: Female
  Weight: 51.75 kg

DRUGS (10)
  1. ACTEMRA [Suspect]
     Active Substance: TOCILIZUMAB
     Indication: Still^s disease
     Dosage: OTHER FREQUENCY : EVERY 4 WEEKS;?
     Route: 042
     Dates: start: 20230828, end: 20230925
  2. CELECOXIB [Concomitant]
     Active Substance: CELECOXIB
  3. ADVAIR HFA [Concomitant]
     Active Substance: FLUTICASONE PROPIONATE\SALMETEROL XINAFOATE
  4. Vegan omega 3 [Concomitant]
  5. HERBALS\TURMERIC [Concomitant]
     Active Substance: HERBALS\TURMERIC
  6. MAGNESIUM [Concomitant]
     Active Substance: MAGNESIUM
  7. VITAMIN B [Concomitant]
     Active Substance: VITAMIN B
  8. IRON [Concomitant]
     Active Substance: IRON
  9. CALCIUM [Concomitant]
     Active Substance: CALCIUM
  10. CLARITIN [Concomitant]
     Active Substance: LORATADINE

REACTIONS (5)
  - Palpitations [None]
  - Angina pectoris [None]
  - Lethargy [None]
  - Migraine [None]
  - Infusion related reaction [None]

NARRATIVE: CASE EVENT DATE: 20230925
